FAERS Safety Report 14838438 (Version 2)
Quarter: 2018Q2

REPORT INFORMATION
  Report Type: Spontaneous
  Country: US (occurrence: US)
  Receive Date: 20180502
  Receipt Date: 20180510
  Transmission Date: 20180711
  Serious: No
  Sender: FDA-Public Use
  Company Number: US-SHIRE-US201816447

PATIENT
  Sex: Female
  Weight: 56.69 kg

DRUGS (2)
  1. XIIDRA [Suspect]
     Active Substance: LIFITEGRAST
     Indication: DRY EYE
     Dosage: UNK
     Route: 047
  2. RESTASIS [Concomitant]
     Active Substance: CYCLOSPORINE
     Indication: PRODUCT USED FOR UNKNOWN INDICATION

REACTIONS (6)
  - Instillation site pain [Unknown]
  - Instillation site discomfort [Unknown]
  - Drug ineffective [Unknown]
  - Instillation site erythema [Unknown]
  - Instillation site reaction [Unknown]
  - Ocular hyperaemia [Unknown]
